FAERS Safety Report 24350175 (Version 1)
Quarter: 2024Q3

REPORT INFORMATION
  Report Type: Report from Study
  Country: IT (occurrence: IT)
  Receive Date: 20240923
  Receipt Date: 20240923
  Transmission Date: 20241017
  Serious: No
  Sender: ROCHE
  Company Number: IT-ROCHE-3509858

PATIENT
  Age: 41 Year
  Sex: Female
  Weight: 75.0 kg

DRUGS (31)
  1. HERCEPTIN [Suspect]
     Active Substance: TRASTUZUMAB
     Indication: HER2 positive breast cancer
     Route: 042
     Dates: start: 20181214, end: 20190125
  2. PERJETA [Suspect]
     Active Substance: PERTUZUMAB
     Indication: HER2 positive breast cancer
     Route: 042
     Dates: start: 20181214, end: 20210129
  3. KADCYLA [Suspect]
     Active Substance: ADO-TRASTUZUMAB EMTANSINE
     Indication: HER2 positive breast cancer
     Route: 042
     Dates: start: 20210225, end: 20210430
  4. TAXOTERE [Suspect]
     Active Substance: DOCETAXEL
     Indication: HER2 positive breast cancer
     Route: 042
     Dates: start: 20181123, end: 20190104
  5. TAXOTERE [Suspect]
     Active Substance: DOCETAXEL
     Route: 042
     Dates: start: 20190125, end: 20190426
  6. FEMARA [Suspect]
     Active Substance: LETROZOLE
     Indication: HER2 positive breast cancer
     Route: 048
     Dates: start: 20190522, end: 20210224
  7. ABEMACICLIB [Suspect]
     Active Substance: ABEMACICLIB
     Indication: HER2 positive breast cancer
     Route: 048
     Dates: start: 20231004, end: 20240103
  8. FASLODEX [Suspect]
     Active Substance: FULVESTRANT
     Indication: HER2 positive breast cancer
     Route: 058
     Dates: start: 20231004, end: 20240103
  9. FAM-TRASTUZUMAB DERUXTECAN-NXKI [Suspect]
     Active Substance: FAM-TRASTUZUMAB DERUXTECAN-NXKI
     Indication: HER2 positive breast cancer
     Route: 042
     Dates: start: 20210615, end: 20230825
  10. ONTRUZANT [Suspect]
     Active Substance: TRASTUZUMAB-DTTB
     Indication: HER2 positive breast cancer
     Route: 042
     Dates: start: 20190215, end: 20210129
  11. TRIPTORELIN [Suspect]
     Active Substance: TRIPTORELIN
     Indication: HER2 positive breast cancer
     Route: 030
     Dates: start: 20151015, end: 20201001
  12. TAVOR (LORAZEPAM) [Concomitant]
     Active Substance: LORAZEPAM
     Dosage: ONGOING = CHECKED
     Dates: start: 20190906
  13. BISOPROLOL [Concomitant]
     Active Substance: BISOPROLOL\BISOPROLOL FUMARATE
     Dosage: ONGOING = CHECKED
     Dates: start: 20210707
  14. SODIUM BICARBONATE [Concomitant]
     Active Substance: SODIUM BICARBONATE
  15. LOPERAMIDE [Concomitant]
     Active Substance: LOPERAMIDE
  16. PREDNISONE [Concomitant]
     Active Substance: PREDNISONE
  17. RANITIDINE [Concomitant]
     Active Substance: RANITIDINE
  18. ONDANSETRON [Concomitant]
     Active Substance: ONDANSETRON
  19. MYCOSTATIN [Concomitant]
     Active Substance: NYSTATIN
  20. CHOLECALCIFEROL [Concomitant]
     Active Substance: CHOLECALCIFEROL
  21. ROCALTROL [Concomitant]
     Active Substance: CALCITRIOL
  22. MONTMORILLONITE [Concomitant]
     Active Substance: MONTMORILLONITE
  23. RIFAXIMIN [Concomitant]
     Active Substance: RIFAXIMIN
  24. BETAMETHASONE [Concomitant]
     Active Substance: BETAMETHASONE
  25. CALCIUM CARBONATE [Concomitant]
     Active Substance: CALCIUM CARBONATE
  26. ACETAMINOPHEN [Concomitant]
     Active Substance: ACETAMINOPHEN
  27. ENALAPRIL [Concomitant]
     Active Substance: ENALAPRIL
  28. LOSARTAN [Concomitant]
     Active Substance: LOSARTAN\LOSARTAN POTASSIUM
  29. URSODIOL [Concomitant]
     Active Substance: URSODIOL
  30. DEXAMETHASONE\TOBRAMYCIN [Concomitant]
     Active Substance: DEXAMETHASONE\TOBRAMYCIN
  31. CHLORAMPHENICOL [Concomitant]
     Active Substance: CHLORAMPHENICOL

REACTIONS (1)
  - Influenza [Recovered/Resolved]

NARRATIVE: CASE EVENT DATE: 20231223
